FAERS Safety Report 17611463 (Version 3)
Quarter: 2020Q2

REPORT INFORMATION
  Report Type: Spontaneous
  Country: US (occurrence: US)
  Receive Date: 20200401
  Receipt Date: 20200629
  Transmission Date: 20200713
  Serious: Yes (Other)
  Sender: FDA-Public Use
  Company Number: US-PFIZER INC-2020134127

PATIENT
  Age: 74 Year
  Sex: Female
  Weight: 46.27 kg

DRUGS (1)
  1. CHANTIX [Suspect]
     Active Substance: VARENICLINE TARTRATE
     Indication: SMOKING CESSATION THERAPY
     Dosage: 1 MG, 2X/DAY(1MG TWICE A DAY)
     Route: 048
     Dates: start: 2016

REACTIONS (2)
  - Pneumonia [Unknown]
  - Emphysema [Unknown]
